FAERS Safety Report 14524330 (Version 1)
Quarter: 2018Q1

REPORT INFORMATION
  Report Type: Spontaneous
  Country: US (occurrence: US)
  Receive Date: 20180213
  Receipt Date: 20180213
  Transmission Date: 20180509
  Serious: No
  Sender: FDA-Public Use
  Company Number: US-PFIZER INC-2018061708

PATIENT
  Age: 13 Year
  Sex: Female
  Weight: 54.43 kg

DRUGS (4)
  1. VENLAFAXINE HCL [Suspect]
     Active Substance: VENLAFAXINE HYDROCHLORIDE
     Indication: BIPOLAR DISORDER
     Dosage: 75 MG, 1X/DAY
     Route: 048
     Dates: start: 2010
  2. LAMOTRIGINE. [Concomitant]
     Active Substance: LAMOTRIGINE
     Indication: BIPOLAR DISORDER
     Dosage: 100 TABLET ONCE A DAY BY MOUTH
     Route: 048
     Dates: start: 2010
  3. VENLAFAXINE HCL [Suspect]
     Active Substance: VENLAFAXINE HYDROCHLORIDE
     Indication: DEPRESSION
  4. LAMOTRIGINE. [Concomitant]
     Active Substance: LAMOTRIGINE
     Indication: MOOD ALTERED

REACTIONS (11)
  - Withdrawal syndrome [Unknown]
  - Crying [Unknown]
  - Product use issue [Unknown]
  - Chills [Unknown]
  - Confusional state [Unknown]
  - Drug dose omission [Unknown]
  - Irritability [Unknown]
  - Influenza like illness [Unknown]
  - Depressed mood [Unknown]
  - Feeling abnormal [Unknown]
  - Malaise [Unknown]

NARRATIVE: CASE EVENT DATE: 2010
